FAERS Safety Report 6749844-1 (Version None)
Quarter: 2010Q2

REPORT INFORMATION
  Report Type: 
  Country: None (occurrence: None)
  Receive Date: 20100601
  Receipt Date: 20100521
  Transmission Date: 20101027
  Serious: Yes (Hospitalization)
  Sender: FDA-Public Use
  Company Number: AU-ASTRAZENECA-2010SE23619

PATIENT
  Age: 82 Year
  Sex: Male
  Weight: 108 kg

DRUGS (6)
  1. FELODIPINE [Suspect]
     Indication: ESSENTIAL HYPERTENSION
     Route: 048
     Dates: end: 20100323
  2. AIROMIR [Concomitant]
     Indication: ASTHMA
     Dosage: AS NECESSARY
     Route: 055
  3. AVAPRO [Concomitant]
     Route: 048
  4. PRAVACHOL [Concomitant]
     Indication: METABOLIC DISORDER
     Route: 048
  5. PROGOUT [Concomitant]
     Route: 048
  6. SERETIDE [Concomitant]
     Indication: ASTHMA
     Route: 055

REACTIONS (4)
  - CELLULITIS [None]
  - ERYTHEMA [None]
  - FLUSHING [None]
  - OEDEMA PERIPHERAL [None]
